FAERS Safety Report 17205641 (Version 1)
Quarter: 2019Q4

REPORT INFORMATION
  Report Type: Spontaneous
  Country: ES (occurrence: ES)
  Receive Date: 20191227
  Receipt Date: 20191227
  Transmission Date: 20200122
  Serious: Yes (Hospitalization, Other)
  Sender: FDA-Public Use
  Company Number: ES-HETERO-HET2019ES01789

PATIENT
  Age: 87 Year
  Sex: Female

DRUGS (1)
  1. VALACICLOVIR [Suspect]
     Active Substance: VALACYCLOVIR HYDROCHLORIDE
     Indication: BLISTER
     Dosage: 1 GRAM, TID (8 HOURS A DAY)
     Route: 048

REACTIONS (3)
  - Neurotoxicity [Recovered/Resolved]
  - Accidental overdose [Unknown]
  - Acute kidney injury [Recovered/Resolved]
